FAERS Safety Report 10074772 (Version 1)
Quarter: 2014Q2

REPORT INFORMATION
  Report Type: Spontaneous
  Country: US (occurrence: US)
  Receive Date: 20140414
  Receipt Date: 20140414
  Transmission Date: 20141212
  Serious: Yes (Other)
  Sender: FDA-Public Use
  Company Number: US-BIOGENIDEC-2014BI035296

PATIENT
  Age: 56 Year
  Sex: Female

DRUGS (12)
  1. AVONEX [Suspect]
     Indication: MULTIPLE SCLEROSIS
     Route: 030
  2. AMPYRA [Concomitant]
     Indication: MULTIPLE SCLEROSIS
     Route: 048
     Dates: start: 20111013
  3. CALCIUM [Concomitant]
     Route: 048
     Dates: start: 20100322
  4. VITAMIN D [Concomitant]
     Route: 048
     Dates: start: 20100322
  5. VITAMIN D [Concomitant]
  6. DONEPEZIL HCL [Concomitant]
     Route: 048
     Dates: start: 20080915
  7. MODAFINIL [Concomitant]
     Route: 048
     Dates: start: 20081218
  8. MODAFINIL [Concomitant]
     Route: 048
  9. OMEPRAZOLE DELAYED RELEASE [Concomitant]
     Route: 048
     Dates: start: 20090119
  10. OXYBUTYNIN CHLORIDE [Concomitant]
     Route: 048
     Dates: start: 20100208
  11. TRIAMCINOLONE ACETONIDE [Concomitant]
     Route: 061
     Dates: start: 20110406
  12. VENLAFAXINE HCL ER [Concomitant]
     Route: 048
     Dates: start: 20131108

REACTIONS (3)
  - Lung adenocarcinoma [Not Recovered/Not Resolved]
  - Gait disturbance [Unknown]
  - Multiple sclerosis [Unknown]
